FAERS Safety Report 8005588-X (Version None)
Quarter: 2011Q4

REPORT INFORMATION
  Report Type: 
  Country: None (occurrence: None)
  Receive Date: 20111223
  Receipt Date: 20111212
  Transmission Date: 20120403
  Serious: Yes (Hospitalization, Other)
  Sender: FDA-Public Use
  Company Number: US-AMGEN-USASP2011066089

PATIENT
  Age: 87 Year
  Sex: Male

DRUGS (4)
  1. EPOGEN [Suspect]
     Dosage: 10000 IU, QWK
     Dates: start: 20090101
  2. EPOGEN [Suspect]
     Dosage: 10000 IU, Q2WK
     Dates: start: 20110901
  3. EPOGEN [Suspect]
     Dosage: 5000 IU, 2 TIMES/WK
  4. EPOGEN [Suspect]
     Indication: RENAL FAILURE CHRONIC
     Dosage: 20000 IU, QWK

REACTIONS (4)
  - OXYGEN SATURATION DECREASED [None]
  - PEMPHIGUS [None]
  - HAEMOGLOBIN DECREASED [None]
  - UPPER RESPIRATORY TRACT INFECTION [None]
